FAERS Safety Report 14160468 (Version 4)
Quarter: 2018Q4

REPORT INFORMATION
  Report Type: Report from Study
  Country: BR (occurrence: BR)
  Receive Date: 20171106
  Receipt Date: 20181029
  Transmission Date: 20190204
  Serious: Yes (Hospitalization, Other)
  Sender: FDA-Public Use
  Company Number: PHHY2014BR037880

PATIENT
  Age: 60 Year
  Sex: Female
  Weight: 49 kg

DRUGS (4)
  1. DIOVAN [Concomitant]
     Active Substance: VALSARTAN
     Indication: ANTICOAGULANT THERAPY
     Dosage: UNK
     Route: 065
  2. SANDOSTATIN LAR DEPOT [Suspect]
     Active Substance: OCTREOTIDE ACETATE
     Dosage: 20 MG, QMO
     Route: 030
     Dates: start: 20181011
  3. SANDOSTATIN LAR DEPOT [Suspect]
     Active Substance: OCTREOTIDE ACETATE
     Indication: ACROMEGALY
     Dosage: 1 AMPOULE, EVERY 30 DAYS
     Route: 030
     Dates: start: 20090101
  4. SANDOSTATIN LAR DEPOT [Suspect]
     Active Substance: OCTREOTIDE ACETATE
     Dosage: UNK
     Route: 065
     Dates: start: 201807

REACTIONS (26)
  - Myocardial infarction [Unknown]
  - Brain neoplasm [Unknown]
  - Blood glucose fluctuation [Unknown]
  - Osteoporosis [Recovering/Resolving]
  - Memory impairment [Recovering/Resolving]
  - Headache [Recovering/Resolving]
  - Diabetes mellitus [Not Recovered/Not Resolved]
  - Arthropathy [Recovering/Resolving]
  - Dizziness [Not Recovered/Not Resolved]
  - Carotid artery stenosis [Not Recovered/Not Resolved]
  - Malaise [Unknown]
  - Peripheral swelling [Unknown]
  - Cardiac arrest [Unknown]
  - Vein disorder [Unknown]
  - Musculoskeletal stiffness [Recovering/Resolving]
  - Myalgia [Not Recovered/Not Resolved]
  - Arrhythmia [Recovering/Resolving]
  - Glaucoma [Not Recovered/Not Resolved]
  - Arthralgia [Not Recovered/Not Resolved]
  - Fatigue [Unknown]
  - Hypoglycaemia [Unknown]
  - Syncope [Unknown]
  - Loss of consciousness [Unknown]
  - Blood cholesterol abnormal [Not Recovered/Not Resolved]
  - Respiratory arrest [Unknown]
  - Pain in extremity [Recovering/Resolving]

NARRATIVE: CASE EVENT DATE: 201305
